FAERS Safety Report 7253686-0 (Version None)
Quarter: 2011Q1

REPORT INFORMATION
  Report Type: 
  Country: None (occurrence: None)
  Receive Date: 20110129
  Receipt Date: 20100225
  Transmission Date: 20110831
  Serious: No
  Sender: FDA-Public Use
  Company Number: US-ABBOTT-10P-163-0623352-00

PATIENT
  Sex: Female
  Weight: 72.64 kg

DRUGS (1)
  1. HUMIRA [Suspect]
     Indication: ANKYLOSING SPONDYLITIS
     Dates: start: 20091105

REACTIONS (6)
  - BURNING SENSATION [None]
  - VISUAL IMPAIRMENT [None]
  - HEADACHE [None]
  - ONYCHOMADESIS [None]
  - RASH PAPULAR [None]
  - PARAESTHESIA [None]
